FAERS Safety Report 7824361-6 (Version None)
Quarter: 2011Q4

REPORT INFORMATION
  Report Type: 
  Country: None (occurrence: None)
  Receive Date: 20111019
  Receipt Date: 20111006
  Transmission Date: 20120403
  Serious: Yes (Other)
  Sender: FDA-Public Use
  Company Number: JP-UCBSA-042972

PATIENT
  Age: 21 Year
  Sex: Male

DRUGS (2)
  1. NO CONCOMITANT MEDICATION [Concomitant]
  2. KEPPRA [Suspect]
     Dosage: 250 MG
     Route: 048

REACTIONS (2)
  - RENAL FAILURE ACUTE [None]
  - CONVULSION [None]
